FAERS Safety Report 14062734 (Version 2)
Quarter: 2017Q4

REPORT INFORMATION
  Report Type: Spontaneous
  Country: IT (occurrence: IT)
  Receive Date: 20171009
  Receipt Date: 20171110
  Transmission Date: 20180321
  Serious: Yes (Other)
  Sender: FDA-Public Use
  Company Number: IT-TEVA-811338ACC

PATIENT
  Age: 61 Year
  Sex: Female

DRUGS (1)
  1. COPAXONE [Suspect]
     Active Substance: GLATIRAMER ACETATE

REACTIONS (8)
  - Injection site pain [Recovering/Resolving]
  - Dyspnoea [Recovering/Resolving]
  - Injection site paraesthesia [Recovering/Resolving]
  - Hypotension [Recovering/Resolving]
  - Bradycardia [Recovering/Resolving]
  - Chest discomfort [Recovering/Resolving]
  - Pain in extremity [Recovering/Resolving]
  - Circulatory collapse [Recovering/Resolving]
